FAERS Safety Report 6512013-4 (Version None)
Quarter: 2009Q4

REPORT INFORMATION
  Report Type: 
  Country: None (occurrence: None)
  Receive Date: 20091222
  Receipt Date: 20090707
  Transmission Date: 20100525
  Serious: Yes (Other)
  Sender: FDA-Public Use
  Company Number: US-ASTRAZENECA-2009UW12596

PATIENT
  Age: 15760 Day
  Sex: Female
  Weight: 56.7 kg

DRUGS (4)
  1. CRESTOR [Suspect]
     Indication: HYPERLIPIDAEMIA
     Route: 048
     Dates: start: 20090312, end: 20090430
  2. CRESTOR [Suspect]
     Route: 048
     Dates: start: 20060130, end: 20090122
  3. FORTEO [Concomitant]
     Indication: OSTEOPOROSIS
     Dosage: 20 MCG
     Route: 058
     Dates: start: 20090312
  4. ADDERALL 10 [Concomitant]
     Indication: ATTENTION DEFICIT/HYPERACTIVITY DISORDER
     Route: 048
     Dates: start: 20060825

REACTIONS (12)
  - ABDOMINAL DISCOMFORT [None]
  - AMNESIA [None]
  - ARTHRALGIA [None]
  - BACK PAIN [None]
  - CONSTIPATION [None]
  - FATIGUE [None]
  - INSOMNIA [None]
  - MOOD SWINGS [None]
  - MUSCULAR WEAKNESS [None]
  - OEDEMA [None]
  - PARAESTHESIA [None]
  - URINE COLOUR ABNORMAL [None]
